FAERS Safety Report 12957926 (Version 1)
Quarter: 2016Q4

REPORT INFORMATION
  Report Type: Spontaneous
  Country: US (occurrence: US)
  Receive Date: 20161118
  Receipt Date: 20161118
  Transmission Date: 20170207
  Serious: Yes (Other)
  Sender: FDA-Public Use
  Company Number: US-ASTRAZENECA-2013SE37924

PATIENT
  Sex: Female

DRUGS (1)
  1. BYDUREON [Suspect]
     Active Substance: EXENATIDE
     Dosage: 2.0MG UNKNOWN
     Route: 065

REACTIONS (4)
  - Neoplasm of thymus [Unknown]
  - Autoimmune disorder [Unknown]
  - Diabetes mellitus inadequate control [Unknown]
  - Injection site nodule [Unknown]

NARRATIVE: CASE EVENT DATE: 2013
